FAERS Safety Report 5348411-4 (Version None)
Quarter: 2007Q2

REPORT INFORMATION
  Report Type: 
  Country: None (occurrence: None)
  Receive Date: 20070606
  Receipt Date: 20070531
  Transmission Date: 20071010
  Serious: Yes (Other)
  Sender: FDA-Public Use
  Company Number: NL-PFIZER INC-2007029352

PATIENT
  Sex: Female

DRUGS (10)
  1. CELEBREX [Suspect]
     Indication: RHEUMATOID ARTHRITIS
     Dosage: DAILY DOSE:200MG-FREQ:INTERVAL: EVERY DAY
     Route: 048
     Dates: start: 20070116, end: 20070416
  2. CELEBREX [Suspect]
     Indication: OSTEOARTHRITIS
  3. CELEBREX [Suspect]
     Indication: ARTHROPATHY
  4. SPIRIVA [Concomitant]
  5. SERTRALINE [Concomitant]
  6. VENTOLIN [Concomitant]
  7. SERETIDE [Concomitant]
  8. OMEPRAZOLE [Concomitant]
  9. GALENIC /FLUTICASONE/SALMETEROL/ [Concomitant]
  10. TIOTROPIUM [Concomitant]
     Route: 048

REACTIONS (5)
  - COUGH [None]
  - DYSPNOEA [None]
  - OSTEOARTHRITIS [None]
  - PRODUCTIVE COUGH [None]
  - RHEUMATOID ARTHRITIS [None]
